FAERS Safety Report 23836633 (Version 1)
Quarter: 2024Q2

REPORT INFORMATION
  Report Type: Spontaneous
  Country: ES (occurrence: ES)
  Receive Date: 20240509
  Receipt Date: 20240509
  Transmission Date: 20240716
  Serious: Yes (Hospitalization)
  Sender: FDA-Public Use
  Company Number: None

PATIENT
  Age: 57 Year
  Sex: Male

DRUGS (6)
  1. QUETIAPINE [Suspect]
     Active Substance: QUETIAPINE
     Indication: Depression
     Dosage: 100 MILLIGRAM, QD (0-0-2)
     Route: 048
     Dates: start: 20240208, end: 20240308
  2. AMLODIPINE [Suspect]
     Active Substance: AMLODIPINE BESYLATE
     Indication: Hypertension
     Dosage: 10 MILLIGRAM, QD (AMLODIPINE 10 MG 0-0-1)
     Route: 048
     Dates: start: 20230525
  3. HYDROCHLOROTHIAZIDE\VALSARTAN [Suspect]
     Active Substance: HYDROCHLOROTHIAZIDE\VALSARTAN
     Indication: Hypertension
     Dosage: 1 DOSAGE FORM, QD (VALSARTAN/HCT 160/25 MG 1-0-0)
     Route: 048
     Dates: start: 20240102
  4. BISOPROLOL [Suspect]
     Active Substance: BISOPROLOL\BISOPROLOL FUMARATE
     Indication: Hypertension
     Dosage: 2.5 MILLIGRAM, QD (1 EVERY 24 HOURS)
     Route: 048
     Dates: start: 20240111
  5. SULPIRIDE [Suspect]
     Active Substance: SULPIRIDE
     Indication: Vertigo positional
     Dosage: 50 MILLIGRAM, Q8H (1 EVERY 8 HOURS)
     Route: 048
     Dates: start: 20240301, end: 20240308
  6. RIVOTRIL [Suspect]
     Active Substance: CLONAZEPAM
     Indication: Depression
     Dosage: 2 MILLIGRAM, QD (RIVOTRIL 2 MG 60 TABLETS, 2 MG ORAL TABLETS CHRONIC 1 BREAKFAST)
     Route: 048
     Dates: start: 20240213

REACTIONS (1)
  - Syncope [Recovered/Resolved]

NARRATIVE: CASE EVENT DATE: 20240308
